FAERS Safety Report 5964052-X (Version None)
Quarter: 2008Q4

REPORT INFORMATION
  Report Type: 
  Country: None (occurrence: None)
  Receive Date: 20081124
  Receipt Date: 20081112
  Transmission Date: 20090506
  Serious: Yes (Hospitalization, Other)
  Sender: FDA-Public Use
  Company Number: US-ELI_LILLY_AND_COMPANY-US200810002277

PATIENT
  Sex: Female

DRUGS (7)
  1. CYMBALTA [Suspect]
     Indication: DEPRESSION
     Dosage: 60 MG, UNK
     Dates: start: 20071001
  2. MICARDIS [Concomitant]
     Indication: BLOOD PRESSURE
  3. BUSPAR [Concomitant]
     Indication: ANXIETY
  4. LUNESTA [Concomitant]
     Indication: SLEEP DISORDER
  5. BUTALBITAL [Concomitant]
     Indication: MIGRAINE
  6. KLONOPIN [Concomitant]
     Dosage: 2 MG, UNK
     Route: 048
     Dates: start: 20081004, end: 20081004
  7. FIORICET [Concomitant]
     Dosage: 4 D/F, UNK
     Route: 048
     Dates: start: 20081004, end: 20081004

REACTIONS (3)
  - DIVERTICULITIS [None]
  - DRUG INEFFECTIVE [None]
  - SUICIDAL IDEATION [None]
